FAERS Safety Report 4711080-8 (Version None)
Quarter: 2005Q3

REPORT INFORMATION
  Report Type: 
  Country: None (occurrence: None)
  Receive Date: 20050708
  Receipt Date: 20050628
  Transmission Date: 20060218
  Serious: Yes (Hospitalization)
  Sender: FDA-Public Use
  Company Number: 2005093642

PATIENT
  Age: 67 Year
  Sex: Male

DRUGS (5)
  1. VIAGRA [Suspect]
     Indication: ERECTILE DYSFUNCTION
     Dosage: UNK (50 MG, PRN), ORAL
     Route: 048
     Dates: start: 20041201, end: 20050601
  2. ENTACAPONE (ENTACAPONE) [Concomitant]
  3. SINEMET [Concomitant]
  4. ROPINIROLE (ROPINIROLE) [Concomitant]
  5. ASPIRIN [Concomitant]

REACTIONS (1)
  - CEREBRAL INFARCTION [None]
